FAERS Safety Report 19380252 (Version 7)
Quarter: 2022Q2

REPORT INFORMATION
  Report Type: Report from Study
  Country: US (occurrence: US)
  Receive Date: 20210607
  Receipt Date: 20220422
  Transmission Date: 20220721
  Serious: No
  Sender: FDA-Public Use
  Company Number: NVSC2021US117219

PATIENT
  Sex: Female

DRUGS (1)
  1. KESIMPTA [Suspect]
     Active Substance: OFATUMUMAB
     Indication: Product used for unknown indication
     Dosage: UNK
     Route: 065

REACTIONS (8)
  - Oropharyngeal pain [Unknown]
  - Vomiting [Unknown]
  - Motion sickness [Unknown]
  - Illness [Unknown]
  - Immune system disorder [Unknown]
  - Tendon rupture [Unknown]
  - Anaemia [Unknown]
  - Cystitis [Unknown]
